FAERS Safety Report 5319614-X (Version None)
Quarter: 2007Q2

REPORT INFORMATION
  Report Type: 
  Country: None (occurrence: None)
  Receive Date: 20070503
  Receipt Date: 20070420
  Transmission Date: 20071010
  Serious: Yes (Death, Hospitalization)
  Sender: FDA-Public Use
  Company Number: FSC_00107_2007

PATIENT
  Age: 77 Year
  Sex: Female

DRUGS (13)
  1. VERAPAMIL [Suspect]
     Dates: start: 20060101
  2. DEANXIT /00428501/ (DEANXIT) [Suspect]
     Dosage: (10/0.5 MG)
  3. LASIX [Suspect]
     Dates: start: 20060101
  4. PIROXICAM [Suspect]
     Dates: start: 20060101
  5. NSAID'S (NSAID'S) [Suspect]
     Dates: start: 20060101
  6. ASPIRIN [Suspect]
     Dates: start: 20060101
  7. ALENDRONATE SODIUM [Suspect]
     Dates: start: 20060101
  8. CEFUROXIME AXETIL [Suspect]
     Dates: start: 20070101
  9. OMEPRAZOLE [Suspect]
     Dates: start: 20070101
  10. SPIRIVA (SPIRIVA) [Concomitant]
  11. BUDESONIDE [Concomitant]
  12. FLUMIL /00082801/  (FLUMIL /00082801/) [Concomitant]
  13. APO-FERROUS SULFATE (APO-FERROUS SULFATE) [Concomitant]

REACTIONS (1)
  - TOXIC EPIDERMAL NECROLYSIS [None]
